FAERS Safety Report 8392063-6 (Version None)
Quarter: 2012Q2

REPORT INFORMATION
  Report Type: 
  Country: None (occurrence: None)
  Receive Date: 20120525
  Receipt Date: 20120525
  Transmission Date: 20120825
  Serious: Yes (Hospitalization)
  Sender: FDA-Public Use
  Company Number: None

PATIENT
  Sex: Male
  Weight: 63 kg

DRUGS (1)
  1. MEMANTINE HYDROCHLORIDE [Suspect]
     Dosage: 80 MG
     Dates: start: 20100603

REACTIONS (11)
  - DIZZINESS [None]
  - HEADACHE [None]
  - FAILURE TO THRIVE [None]
  - DECREASED APPETITE [None]
  - FATIGUE [None]
  - HYPOPHAGIA [None]
  - DYSGEUSIA [None]
  - WEIGHT DECREASED [None]
  - MALAISE [None]
  - MENTAL STATUS CHANGES [None]
  - LETHARGY [None]
